FAERS Safety Report 15065471 (Version 1)
Quarter: 2018Q2

REPORT INFORMATION
  Report Type: Report from Study
  Country: US (occurrence: US)
  Receive Date: 20180626
  Receipt Date: 20180626
  Transmission Date: 20180711
  Serious: Yes (Hospitalization)
  Sender: FDA-Public Use
  Company Number: US-AUROBINDO-AUR-APL-2018-014843

PATIENT
  Age: 26 Year
  Sex: Female

DRUGS (4)
  1. DEXMEDETOMIDINE. [Suspect]
     Active Substance: DEXMEDETOMIDINE
     Indication: PROCEDURAL COMPLICATION
     Dosage: 2 MICROGRAM/KILOGRAM
     Route: 042
  2. DEXMEDETOMIDINE. [Suspect]
     Active Substance: DEXMEDETOMIDINE
     Indication: ADRENERGIC SYNDROME
  3. DIAZEPAM. [Suspect]
     Active Substance: DIAZEPAM
     Indication: ADRENERGIC SYNDROME
     Dosage: 5 MILLIGRAM
     Route: 042
  4. DEXMEDETOMIDINE. [Suspect]
     Active Substance: DEXMEDETOMIDINE
     Indication: SEDATION

REACTIONS (1)
  - Sedation [Unknown]
